FAERS Safety Report 7214705-0 (Version None)
Quarter: 2011Q1

REPORT INFORMATION
  Report Type: 
  Country: None (occurrence: None)
  Receive Date: 20110107
  Receipt Date: 20091201
  Transmission Date: 20110831
  Serious: No
  Sender: FDA-Public Use
  Company Number: A0833995A

PATIENT

DRUGS (1)
  1. LOVAZA [Suspect]

REACTIONS (3)
  - ERUCTATION [None]
  - PRODUCT QUALITY ISSUE [None]
  - DYSGEUSIA [None]
